FAERS Safety Report 8329213-3 (Version None)
Quarter: 2012Q2

REPORT INFORMATION
  Report Type: 
  Country: None (occurrence: None)
  Receive Date: 20120502
  Receipt Date: 20120427
  Transmission Date: 20120825
  Serious: Yes (Death)
  Sender: FDA-Public Use
  Company Number: US-CELGENEUS-163-21880-12043257

PATIENT
  Sex: Male

DRUGS (14)
  1. SPIRIVA [Concomitant]
     Route: 065
  2. WARFARIN [Concomitant]
     Route: 065
  3. ALDACTONE [Concomitant]
     Route: 065
  4. LOPRESSOR [Concomitant]
     Route: 065
  5. Q-TUSSIN [Concomitant]
     Route: 065
  6. LASIX [Concomitant]
     Route: 065
  7. PROAIR HFA [Concomitant]
     Route: 065
  8. VICODIN [Concomitant]
     Route: 065
  9. DEXAMETHASONE [Concomitant]
     Route: 065
  10. LEXAPRO [Concomitant]
     Route: 065
  11. REVLIMID [Suspect]
     Indication: MULTIPLE MYELOMA
     Dosage: 5 MILLIGRAM
     Route: 048
     Dates: start: 20120305
  12. MULTI-VITAMINS [Concomitant]
     Route: 065
  13. PRILOSEC [Concomitant]
     Route: 065
  14. POTASSIUM CHLORIDE [Concomitant]
     Route: 065

REACTIONS (1)
  - DEATH [None]
